FAERS Safety Report 8400906-2 (Version None)
Quarter: 2012Q2

REPORT INFORMATION
  Report Type: 
  Country: None (occurrence: None)
  Receive Date: 20120601
  Receipt Date: 20120528
  Transmission Date: 20120825
  Serious: Yes (Other)
  Sender: FDA-Public Use
  Company Number: IE-AMGEN-IRLSP2012026649

PATIENT
  Age: 70 Year
  Sex: Female
  Weight: 44.45 kg

DRUGS (6)
  1. XANAX [Concomitant]
     Dosage: UNK UNK, QD
  2. CALCICHEW D3 [Concomitant]
     Dosage: UNK UNK, BID
  3. ACETAMINOPHEN AND TRAMADOL HCL [Concomitant]
     Dosage: UNK UNK, TID
  4. EVISTA [Concomitant]
     Dosage: UNK UNK, QD
  5. PROLIA [Suspect]
     Indication: OSTEOPOROSIS POSTMENOPAUSAL
     Dosage: 60 MG, QMO
     Route: 058
     Dates: start: 20120327
  6. ZIMOVANE [Concomitant]

REACTIONS (3)
  - HEADACHE [None]
  - PAIN IN JAW [None]
  - CONSTIPATION [None]
